FAERS Safety Report 7407542-5 (Version None)
Quarter: 2011Q2

REPORT INFORMATION
  Report Type: 
  Country: None (occurrence: None)
  Receive Date: 20110412
  Receipt Date: 20110405
  Transmission Date: 20111010
  Serious: Yes (Other)
  Sender: FDA-Public Use
  Company Number: US-BIOGENIDEC-2011BI008709

PATIENT
  Age: 44 Year
  Sex: Female

DRUGS (2)
  1. AVONEX [Suspect]
     Indication: MULTIPLE SCLEROSIS
     Route: 030
     Dates: start: 20101022
  2. AVONEX [Suspect]
     Route: 030
     Dates: start: 20020926, end: 20100209

REACTIONS (5)
  - RESPIRATORY ARREST [None]
  - BRONCHOSPASM [None]
  - WHEEZING [None]
  - BRONCHITIS BACTERIAL [None]
  - DRUG HYPERSENSITIVITY [None]
